FAERS Safety Report 21868768 (Version 1)
Quarter: 2023Q1

REPORT INFORMATION
  Report Type: Spontaneous
  Country: FR (occurrence: FR)
  Receive Date: 20230117
  Receipt Date: 20230117
  Transmission Date: 20230417
  Serious: Yes (Hospitalization)
  Sender: FDA-Public Use
  Company Number: None

PATIENT
  Age: 30 Year
  Sex: Female
  Weight: 66 kg

DRUGS (1)
  1. SORAFENIB TOSYLATE [Suspect]
     Active Substance: SORAFENIB TOSYLATE
     Indication: Hepatocellular carcinoma
     Route: 065
     Dates: start: 20220502, end: 20220513

REACTIONS (1)
  - Rash maculo-papular [Recovered/Resolved]

NARRATIVE: CASE EVENT DATE: 20220513
